FAERS Safety Report 21220666 (Version 1)
Quarter: 2022Q3

REPORT INFORMATION
  Report Type: Spontaneous
  Country: US (occurrence: US)
  Receive Date: 20220817
  Receipt Date: 20220817
  Transmission Date: 20221027
  Serious: Yes (Hospitalization, Other)
  Sender: FDA-Public Use
  Company Number: US-SA-SAC20220816000252

PATIENT
  Sex: Female
  Weight: 102.6 kg

DRUGS (11)
  1. NICOTINE [Suspect]
     Active Substance: NICOTINE
     Dosage: UNK
  2. HYDROCORTISONE [Suspect]
     Active Substance: HYDROCORTISONE
     Dosage: UNK
  3. ARIPIPRAZOLE [Suspect]
     Active Substance: ARIPIPRAZOLE
     Indication: Schizoaffective disorder
     Dosage: 20 MG, QD
  4. ARIPIPRAZOLE [Suspect]
     Active Substance: ARIPIPRAZOLE
     Dosage: 5 MG
  5. ARIPIPRAZOLE [Suspect]
     Active Substance: ARIPIPRAZOLE
     Indication: Product used for unknown indication
     Dosage: 2 MG, QD
  6. ARIPIPRAZOLE [Suspect]
     Active Substance: ARIPIPRAZOLE
     Dosage: 4 MG, QD
     Dates: end: 20201128
  7. GABAPENTIN [Concomitant]
     Active Substance: GABAPENTIN
  8. ATORVASTATIN [Concomitant]
     Active Substance: ATORVASTATIN
  9. PROPRANOLOL [Concomitant]
     Active Substance: PROPRANOLOL HYDROCHLORIDE
  10. THORAZINE [Concomitant]
     Active Substance: CHLORPROMAZINE
  11. SEROQUEL [Concomitant]
     Active Substance: QUETIAPINE FUMARATE

REACTIONS (22)
  - Memory impairment [Unknown]
  - Anaphylactic reaction [Unknown]
  - Depressed level of consciousness [Unknown]
  - Drug ineffective [Unknown]
  - Temperature intolerance [Unknown]
  - Heavy menstrual bleeding [Unknown]
  - Drug hypersensitivity [Unknown]
  - Muscle tightness [Unknown]
  - Dyspnoea [Unknown]
  - Arthralgia [Unknown]
  - Polyuria [Unknown]
  - Photosensitivity reaction [Unknown]
  - Nausea [Unknown]
  - Restlessness [Unknown]
  - Constipation [Unknown]
  - Compulsive shopping [Unknown]
  - Anxiety [Unknown]
  - Musculoskeletal stiffness [Recovered/Resolved]
  - Rash [Recovering/Resolving]
  - Hypersensitivity [Unknown]
  - Tobacco user [Unknown]
  - Feeling hot [Unknown]
